FAERS Safety Report 5415385-7 (Version None)
Quarter: 2007Q3

REPORT INFORMATION
  Report Type: 
  Country: None (occurrence: None)
  Receive Date: 20070813
  Receipt Date: 20070727
  Transmission Date: 20080115
  Serious: Yes (Hospitalization)
  Sender: FDA-Public Use
  Company Number: DSA_30037_2007

PATIENT
  Sex: Male

DRUGS (1)
  1. DILTIAZEM HYDROCHLORIDE [Suspect]
     Indication: ANGINA PECTORIS
     Dosage: 400 MG ORAL
     Route: 048
     Dates: start: 20050627, end: 20050630

REACTIONS (4)
  - ACUTE GENERALISED EXANTHEMATOUS PUSTULOSIS [None]
  - BLOOD IMMUNOGLOBULIN M DECREASED [None]
  - BLOOD LACTATE DEHYDROGENASE INCREASED [None]
  - SKIN TEST POSITIVE [None]
